FAERS Safety Report 9708398 (Version 5)
Quarter: 2015Q2

REPORT INFORMATION
  Report Type: Report from Study
  Country: US (occurrence: US)
  Receive Date: 20131125
  Receipt Date: 20150420
  Transmission Date: 20150821
  Serious: Yes (Hospitalization)
  Sender: FDA-Public Use
  Company Number: US-ACTELION-A-US2013-91750

PATIENT
  Age: 84 Year
  Sex: Female

DRUGS (4)
  1. VENTAVIS [Suspect]
     Active Substance: ILOPROST
     Indication: PULMONARY ARTERIAL HYPERTENSION
     Dosage: 5 MCG, 6 TIMES DAILY
     Route: 055
     Dates: start: 20090702
  2. ADCIRCA [Concomitant]
     Active Substance: TADALAFIL
  3. VENTAVIS [Suspect]
     Active Substance: ILOPROST
     Dosage: 5 MCG, 5 TO 9 TIMES DAILY
     Route: 055
  4. VENTAVIS [Suspect]
     Active Substance: ILOPROST
     Dosage: 5 MCG, 6 TIMES DAILY
     Route: 055

REACTIONS (9)
  - Cough [Recovered/Resolved]
  - Urinary tract infection [Unknown]
  - Chronic obstructive pulmonary disease [Recovered/Resolved]
  - Tracheobronchitis [Recovering/Resolving]
  - Pneumonia [Recovered/Resolved]
  - Hypoxia [Recovered/Resolved]
  - Pyrexia [Recovered/Resolved]
  - Dyspnoea [Recovered/Resolved]
  - Acute respiratory failure [Recovered/Resolved]

NARRATIVE: CASE EVENT DATE: 20131019
